APPROVED DRUG PRODUCT: GYNE-LOTRIMIN 3
Active Ingredient: CLOTRIMAZOLE
Strength: 200MG
Dosage Form/Route: TABLET;VAGINAL
Application: N020525 | Product #001
Applicant: BAYER HEALTHCARE LLC
Approved: Jul 29, 1996 | RLD: Yes | RS: No | Type: DISCN